FAERS Safety Report 23428773 (Version 6)
Quarter: 2024Q4

REPORT INFORMATION
  Report Type: Report from Study
  Country: US (occurrence: US)
  Receive Date: 20240122
  Receipt Date: 20241211
  Transmission Date: 20250115
  Serious: Yes (Other)
  Sender: OTSUKA
  Company Number: US-OTSUKA-2023_023738

PATIENT
  Sex: Female

DRUGS (1)
  1. TOLVAPTAN [Suspect]
     Active Substance: TOLVAPTAN
     Indication: Congenital cystic kidney disease
     Dosage: UNK
     Route: 065
     Dates: start: 20230818

REACTIONS (20)
  - Spinal operation [Unknown]
  - Rotator cuff syndrome [Not Recovered/Not Resolved]
  - Illness [Unknown]
  - Feeding disorder [Unknown]
  - Influenza [Recovered/Resolved]
  - COVID-19 [Recovered/Resolved]
  - Muscle atrophy [Not Recovered/Not Resolved]
  - Dysphagia [Unknown]
  - Sleep disorder [Unknown]
  - Sinusitis [Recovered/Resolved]
  - Sinusitis [Unknown]
  - Vomiting [Unknown]
  - Orthostatic hypotension [Not Recovered/Not Resolved]
  - Nausea [Unknown]
  - Chest pain [Unknown]
  - Thirst [Unknown]
  - Pollakiuria [Unknown]
  - Product dose omission in error [Unknown]
  - Drug monitoring procedure not performed [Unknown]
  - Insurance issue [Unknown]

NARRATIVE: CASE EVENT DATE: 20230906
